FAERS Safety Report 8841965 (Version 1)
Quarter: 2012Q4

REPORT INFORMATION
  Report Type: Spontaneous
  Country: US (occurrence: None)
  Receive Date: 20121015
  Receipt Date: 20121015
  Transmission Date: 20130627
  Serious: No
  Sender: FDA-Public Use
  Company Number: None

PATIENT
  Sex: Male
  Weight: 93.44 kg

DRUGS (49)
  1. PREDNISONE [Suspect]
     Indication: LOW BACK PAIN
     Dosage: 10 mg 6,5,4,3,2,1 B/M QTY 21 Six Days
     Route: 048
     Dates: start: 20120905
  2. PREDNISONE [Suspect]
     Indication: LOW BACK PAIN
     Dosage: 10 mg 6,5,4,3,2,1 B/M QTY 21 Six Days
     Route: 048
     Dates: start: 20120905
  3. PREDNISONE [Suspect]
     Indication: LOW BACK PAIN
     Dosage: 10 mg 6,5,4,3,2,1 B/M QTY 21 Six Days
     Route: 048
     Dates: start: 20120905
  4. PREDNISONE [Suspect]
     Indication: LOW BACK PAIN
     Dosage: 10 mg 6,5,4,3,2,1 B/M QTY 21 Six Days
     Route: 048
     Dates: start: 20120905
  5. PREDNISONE [Suspect]
     Indication: LOW BACK PAIN
     Dosage: 10 mg 6,5,4,3,2,1 B/M QTY 21 Six Days
     Route: 048
     Dates: start: 20120905
  6. PREDNISONE [Suspect]
     Indication: LOW BACK PAIN
     Dosage: 10 mg 6,5,4,3,2,1 B/M QTY 21 Six Days
     Route: 048
     Dates: start: 20120905
  7. PREDNISONE [Suspect]
     Indication: LOW BACK PAIN
     Dosage: 10 mg 6,5,4,3,2,1 B/M QTY 21 Six Days
     Route: 048
     Dates: start: 20120905
  8. PREDNISONE [Suspect]
     Indication: LOW BACK PAIN
     Dosage: 10 mg 6,5,4,3,2,1 B/M QTY 21 Six Days
     Route: 048
     Dates: start: 20120905
  9. PREDNISONE [Suspect]
     Indication: LOW BACK PAIN
     Dates: start: 20120906
  10. PREDNISONE [Suspect]
     Indication: LOW BACK PAIN
     Dates: start: 20120906
  11. PREDNISONE [Suspect]
     Indication: LOW BACK PAIN
     Dates: start: 20120906
  12. PREDNISONE [Suspect]
     Indication: LOW BACK PAIN
     Dates: start: 20120906
  13. PREDNISONE [Suspect]
     Indication: LOW BACK PAIN
     Dates: start: 20120906
  14. PREDNISONE [Suspect]
     Indication: LOW BACK PAIN
     Dates: start: 20120906
  15. PREDNISONE [Suspect]
     Indication: LOW BACK PAIN
     Dates: start: 20120906
  16. PREDNISONE [Suspect]
     Indication: LOW BACK PAIN
     Dates: start: 20120906
  17. PREDNISONE [Suspect]
     Indication: LOW BACK PAIN
     Dates: start: 20120907
  18. PREDNISONE [Suspect]
     Indication: LOW BACK PAIN
     Dates: start: 20120907
  19. PREDNISONE [Suspect]
     Indication: LOW BACK PAIN
     Dates: start: 20120907
  20. PREDNISONE [Suspect]
     Indication: LOW BACK PAIN
     Dates: start: 20120907
  21. PREDNISONE [Suspect]
     Indication: LOW BACK PAIN
     Dates: start: 20120907
  22. PREDNISONE [Suspect]
     Indication: LOW BACK PAIN
     Dates: start: 20120907
  23. PREDNISONE [Suspect]
     Indication: LOW BACK PAIN
     Dates: start: 20120907
  24. PREDNISONE [Suspect]
     Indication: LOW BACK PAIN
     Dates: start: 20120907
  25. PREDNISONE [Suspect]
     Indication: LOW BACK PAIN
     Dates: start: 20120908
  26. PREDNISONE [Suspect]
     Indication: LOW BACK PAIN
     Dates: start: 20120908
  27. PREDNISONE [Suspect]
     Indication: LOW BACK PAIN
     Dates: start: 20120908
  28. PREDNISONE [Suspect]
     Indication: LOW BACK PAIN
     Dates: start: 20120908
  29. PREDNISONE [Suspect]
     Indication: LOW BACK PAIN
     Dates: start: 20120908
  30. PREDNISONE [Suspect]
     Indication: LOW BACK PAIN
     Dates: start: 20120908
  31. PREDNISONE [Suspect]
     Indication: LOW BACK PAIN
     Dates: start: 20120908
  32. PREDNISONE [Suspect]
     Indication: LOW BACK PAIN
     Dates: start: 20120908
  33. PREDNISONE [Suspect]
     Indication: LOW BACK PAIN
     Dates: start: 20120910
  34. PREDNISONE [Suspect]
     Indication: LOW BACK PAIN
     Dates: start: 20120910
  35. PREDNISONE [Suspect]
     Indication: LOW BACK PAIN
     Dates: start: 20120910
  36. PREDNISONE [Suspect]
     Indication: LOW BACK PAIN
     Dates: start: 20120910
  37. PREDNISONE [Suspect]
     Indication: LOW BACK PAIN
     Dates: start: 20120910
  38. PREDNISONE [Suspect]
     Indication: LOW BACK PAIN
     Dates: start: 20120910
  39. PREDNISONE [Suspect]
     Indication: LOW BACK PAIN
     Dates: start: 20120910
  40. PREDNISONE [Suspect]
     Indication: LOW BACK PAIN
     Dates: start: 20120910
  41. PREDNISONE [Suspect]
     Indication: LOW BACK PAIN
     Dates: start: 20120913
  42. PREDNISONE [Suspect]
     Indication: LOW BACK PAIN
     Dates: start: 20120913
  43. PREDNISONE [Suspect]
     Indication: LOW BACK PAIN
     Dates: start: 20120913
  44. PREDNISONE [Suspect]
     Indication: LOW BACK PAIN
     Dates: start: 20120913
  45. PREDNISONE [Suspect]
     Indication: LOW BACK PAIN
     Dates: start: 20120913
  46. PREDNISONE [Suspect]
     Indication: LOW BACK PAIN
     Dates: start: 20120913
  47. PREDNISONE [Suspect]
     Indication: LOW BACK PAIN
     Dates: start: 20120913
  48. PREDNISONE [Suspect]
     Indication: LOW BACK PAIN
     Dates: start: 20120913
  49. PREDNISONE [Concomitant]

REACTIONS (10)
  - Bone pain [None]
  - Back pain [None]
  - Oedema peripheral [None]
  - Myalgia [None]
  - Asthenia [None]
  - Gait disturbance [None]
  - Pain in extremity [None]
  - Hypoaesthesia [None]
  - Loss of control of legs [None]
  - No therapeutic response [None]
